FAERS Safety Report 6303516-6 (Version None)
Quarter: 2009Q3

REPORT INFORMATION
  Report Type: 
  Country: None (occurrence: None)
  Receive Date: 20090810
  Receipt Date: 20090729
  Transmission Date: 20100115
  Serious: Yes (Hospitalization)
  Sender: FDA-Public Use
  Company Number: DE-SANOFI-SYNTHELABO-F04200900066

PATIENT
  Sex: Male

DRUGS (9)
  1. ALLOPURINOL [Concomitant]
     Indication: DRUG USE FOR UNKNOWN INDICATION
     Dosage: UNK
     Route: 048
  2. EMEND [Concomitant]
     Indication: PREMEDICATION
     Dosage: 128 MG/80 MG
     Route: 048
  3. MAGNESIUM SULFATE [Concomitant]
     Indication: PREMEDICATION
     Dosage: UNK
     Route: 065
  4. CALCIUM GLUCONATE [Concomitant]
     Indication: PREMEDICATION
     Dosage: UNK
     Route: 065
  5. KEVATRIL [Concomitant]
     Indication: PREMEDICATION
     Dosage: UNK
     Route: 065
  6. FORTECORTIN [Concomitant]
     Indication: PREMEDICATION
     Dosage: UNK
     Route: 065
  7. FOLINIC ACID [Suspect]
     Indication: GASTRIC CANCER
     Route: 041
     Dates: start: 20081228, end: 20081228
  8. FLUOROURACIL [Suspect]
     Indication: GASTRIC CANCER
     Route: 041
     Dates: start: 20081228, end: 20081228
  9. OXALIPLATIN [Suspect]
     Indication: GASTRIC CANCER
     Route: 041
     Dates: start: 20081228, end: 20081228

REACTIONS (4)
  - DISEASE PROGRESSION [None]
  - ILEUS [None]
  - PLEURAL EFFUSION [None]
  - PNEUMONIA [None]
